FAERS Safety Report 13517642 (Version 3)
Quarter: 2017Q3

REPORT INFORMATION
  Report Type: Spontaneous
  Country: US (occurrence: US)
  Receive Date: 20170505
  Receipt Date: 20170830
  Transmission Date: 20171127
  Serious: Yes (Other)
  Sender: FDA-Public Use
  Company Number: US-PFIZER INC-2017191868

PATIENT
  Age: 11 Year
  Sex: Female
  Weight: 43 kg

DRUGS (19)
  1. GENOTROPIN MQ [Suspect]
     Active Substance: SOMATROPIN
     Indication: GROWTH HORMONE DEFICIENCY
     Dosage: 1.2 MG, 1X/DAY
     Dates: start: 200911
  2. PROVENTIL [Concomitant]
     Active Substance: ALBUTEROL
     Indication: BRONCHOSPASM
     Dosage: 2.5 MG, AS NEEDED (NEBULIZATION EVERY 6 HOURS AS NEEDED)
  3. VITAMIN D [Concomitant]
     Active Substance: CHOLECALCIFEROL
     Dosage: 1000 IU, UNK
     Route: 048
  4. CELEXA [Concomitant]
     Active Substance: CITALOPRAM HYDROBROMIDE
     Indication: ABNORMAL BEHAVIOUR
  5. MELATONIN [Concomitant]
     Active Substance: MELATONIN
     Dosage: UNK UNK, 1X/DAY (1 MG/4 ML LIQUID; SIG: TAKE NIGHTLY AT BEDTIME)
     Route: 048
  6. GENOTROPIN MQ [Suspect]
     Active Substance: SOMATROPIN
     Indication: PRADER-WILLI SYNDROME
     Dosage: 1.2 MG, DAILY
  7. SINGULAIR [Concomitant]
     Active Substance: MONTELUKAST SODIUM
     Dosage: 5 MG, 1X/DAY (NIGHTLY)
     Route: 048
  8. TRAZODONE [Concomitant]
     Active Substance: TRAZODONE HYDROCHLORIDE
     Indication: SLEEP DISORDER
     Dosage: UNK UNK, 1X/DAY (NIGHT)
  9. FLONASE [Concomitant]
     Active Substance: FLUTICASONE PROPIONATE
     Dosage: 1 DF (1 SPRAY; 50 MCG/ACT), DAILY
     Route: 045
  10. CELEXA [Concomitant]
     Active Substance: CITALOPRAM HYDROBROMIDE
     Indication: ANXIETY
  11. MELATONIN [Concomitant]
     Active Substance: MELATONIN
     Dosage: 3 MG, UNK
     Route: 048
  12. GENOTROPIN MQ [Suspect]
     Active Substance: SOMATROPIN
     Dosage: 1 MG, 1X/DAY (INJECT 1 MG INTO THE SKIN NIGHTLY AT BEDTIME)
     Route: 058
     Dates: start: 20160320
  13. PROVENTIL [Concomitant]
     Active Substance: ALBUTEROL
     Indication: RESPIRATORY DISTRESS
  14. ELAVIL [Concomitant]
     Active Substance: AMITRIPTYLINE HYDROCHLORIDE
     Dosage: 75 MG, 1X/DAY (NIGHTLY AT BEDTIME)
     Route: 048
  15. CELEXA [Concomitant]
     Active Substance: CITALOPRAM HYDROBROMIDE
     Indication: SLEEP DISORDER
     Dosage: 20 MG, DAILY
     Route: 048
  16. VYVANSE [Concomitant]
     Active Substance: LISDEXAMFETAMINE DIMESYLATE
     Indication: ABNORMAL BEHAVIOUR
  17. DESYREL [Concomitant]
     Active Substance: TRAZODONE HYDROCHLORIDE
     Dosage: 50 MG, 1X/DAY (NIGHTLY AT BEDTIME)
     Route: 048
  18. CARNITOR [Concomitant]
     Active Substance: LEVOCARNITINE
     Dosage: 10 ML, DAILY
     Route: 048
     Dates: start: 20150316
  19. VYVANSE [Concomitant]
     Active Substance: LISDEXAMFETAMINE DIMESYLATE
     Indication: ANXIETY
     Dosage: 20 MG, 1X/DAY (EVERY MORNING)
     Route: 048

REACTIONS (8)
  - Narcolepsy [Unknown]
  - Eating disorder [Not Recovered/Not Resolved]
  - Abdominal pain [Not Recovered/Not Resolved]
  - Excoriation [Not Recovered/Not Resolved]
  - Affect lability [Unknown]
  - Defiant behaviour [Unknown]
  - Aggression [Unknown]
  - Fatigue [Unknown]
